FAERS Safety Report 24943444 (Version 1)
Quarter: 2025Q1

REPORT INFORMATION
  Report Type: Report from Study
  Country: CO (occurrence: CO)
  Receive Date: 20250207
  Receipt Date: 20250207
  Transmission Date: 20250408
  Serious: Yes (Death, Hospitalization, Other)
  Sender: ALEXION PHARMACEUTICALS
  Company Number: CO-AstraZeneca-CH-00800186A

PATIENT
  Age: 47 Year
  Weight: 80 kg

DRUGS (1)
  1. ACALABRUTINIB [Suspect]
     Active Substance: ACALABRUTINIB
     Indication: Chronic lymphocytic leukaemia
     Dosage: 100 MILLIGRAM, Q12H

REACTIONS (8)
  - Abdominal pain [Fatal]
  - Fatigue [Fatal]
  - Hypotension [Fatal]
  - Renal failure [Fatal]
  - Hepatic failure [Fatal]
  - Respiratory failure [Fatal]
  - Pyrexia [Fatal]
  - White blood cell count decreased [Fatal]
